FAERS Safety Report 7134673-X (Version None)
Quarter: 2010Q4

REPORT INFORMATION
  Report Type: 
  Country: None (occurrence: None)
  Receive Date: 20101203
  Receipt Date: 20101122
  Transmission Date: 20110411
  Serious: Yes (Hospitalization)
  Sender: FDA-Public Use
  Company Number: CA-ROCHE-554661

PATIENT
  Sex: Female
  Weight: 61.4 kg

DRUGS (12)
  1. TAMIFLU [Suspect]
     Route: 048
     Dates: start: 20070223, end: 20070227
  2. PLAVIX [Suspect]
     Indication: TRANSIENT ISCHAEMIC ATTACK
     Dosage: EACH MORNING.
     Route: 048
  3. ATENOLOL [Concomitant]
     Route: 048
  4. REMINYL [Concomitant]
     Route: 048
  5. GABAPENTIN [Concomitant]
     Route: 048
  6. FERROUS FUMARATE [Concomitant]
     Route: 048
  7. ACETAMINOPHEN W/ CODEINE [Concomitant]
     Dosage: 2 TIMES MORNING, 1 TIMES AT NOON AND 2 TIMES HS.
     Route: 048
  8. PILOCARPINE [Concomitant]
     Dosage: DRUG: PILOCARPINE/ISOPTOCARPINE. ROUTE: OCCULAR. TDD: ONE DROP QID RIGHT EYE.
     Route: 050
  9. TIMOLOL [Concomitant]
     Dosage: ROUTE: OCCULAR. 1 DROP EACH EYE BID.
     Route: 050
  10. OLANZAPINE [Concomitant]
     Dosage: 2.5 MG IN THE MORNING AND 5 MG IN THE EVENING.
     Route: 048
  11. XALATAN [Concomitant]
     Route: 047
  12. XALATAN [Concomitant]
     Route: 047

REACTIONS (8)
  - BLOOD CREATININE INCREASED [None]
  - DEHYDRATION [None]
  - LETHARGY [None]
  - PNEUMONIA BACTERIAL [None]
  - PULMONARY CONGESTION [None]
  - RASH [None]
  - RESPIRATORY DISORDER [None]
  - SEPSIS [None]
